FAERS Safety Report 4596272-3 (Version None)
Quarter: 2005Q1

REPORT INFORMATION
  Report Type: 
  Country: None (occurrence: None)
  Receive Date: 20050228
  Receipt Date: 20050214
  Transmission Date: 20050727
  Serious: Yes (Hospitalization)
  Sender: FDA-Public Use
  Company Number: 2005029231

PATIENT
  Age: 75 Year
  Sex: Female
  Weight: 81.6475 kg

DRUGS (6)
  1. DOXIDAN (CASANTHRANOL, DOCUSATE SODIUM) [Suspect]
     Indication: FAECES HARD
     Dosage: 2 TABLETS (ONE DOSE EVERY 5-8 WEEKS), ORAL
     Route: 048
  2. POTASSIUM ACETATE [Concomitant]
  3. HYDROCHLOROTHIAZIDE [Concomitant]
  4. ATENOLOL [Concomitant]
  5. ENALAPRIL MALEATE [Concomitant]
  6. ATORVASTATIN (ATORVASTATIN) [Concomitant]

REACTIONS (2)
  - DYSPEPSIA [None]
  - SYNCOPE [None]
